FAERS Safety Report 17278346 (Version 1)
Quarter: 2020Q1

REPORT INFORMATION
  Report Type: Spontaneous
  Country: US (occurrence: US)
  Receive Date: 20191227
  Receipt Date: 20191227
  Transmission Date: 20200409
  Serious: Yes (Hospitalization)
  Sender: FDA-Public Use
  Company Number: None

PATIENT
  Age: 37 Year
  Sex: Male
  Weight: 102 kg

DRUGS (5)
  1. TAXOL [Suspect]
     Active Substance: PACLITAXEL
     Dates: end: 20191011
  2. CARBOPLATIN. [Suspect]
     Active Substance: CARBOPLATIN
     Dates: end: 20191125
  3. ETOPOSIDE. [Suspect]
     Active Substance: ETOPOSIDE
     Dates: end: 20191125
  4. G-CSF (FILGRASTIM, AMGEN) [Concomitant]
     Active Substance: FILGRASTIM
     Dates: end: 20191210
  5. IFOSFAMIDE. [Suspect]
     Active Substance: IFOSFAMIDE
     Dates: end: 20191013

REACTIONS (6)
  - Muscle spasms [None]
  - Rhabdomyolysis [None]
  - Dysstasia [None]
  - Chills [None]
  - Blood creatine phosphokinase increased [None]
  - Neutropenic sepsis [None]

NARRATIVE: CASE EVENT DATE: 20191208
